FAERS Safety Report 4466380-6 (Version None)
Quarter: 2004Q3

REPORT INFORMATION
  Report Type: 
  Country: None (occurrence: None)
  Receive Date: 20040930
  Receipt Date: 20040917
  Transmission Date: 20050211
  Serious: Yes (Hospitalization)
  Sender: FDA-Public Use
  Company Number: 209116

PATIENT
  Sex: Female

DRUGS (1)
  1. RITUXAN [Suspect]
     Indication: CENTRAL NERVOUS SYSTEM LYMPHOMA
     Dosage: INTRAVENOUS
     Route: 042

REACTIONS (1)
  - CEREBRAL HAEMORRHAGE [None]
